FAERS Safety Report 5259537-8 (Version None)
Quarter: 2007Q1

REPORT INFORMATION
  Report Type: 
  Country: None (occurrence: None)
  Receive Date: 20070306
  Receipt Date: 20070220
  Transmission Date: 20070707
  Serious: Yes (Death)
  Sender: FDA-Public Use
  Company Number: 236972

PATIENT
  Age: 74 Year
  Sex: Male
  Weight: 65.8 kg

DRUGS (4)
  1. BEVACIZUMAB OR PLACEBO (BEVACIZUMAB) PWDR + SOLVENT, INFUSION SOLN, 10 [Suspect]
     Indication: NON-SMALL CELL LUNG CANCER
     Dosage: 1016, Q3W, INTRAVENOUS
     Route: 042
     Dates: start: 20060615, end: 20070118
  2. BEVACIZUMAB OR PLACEBO (BEVACIZUMAB) PWDR + SOLVENT, INFUSION SOLN, 10 [Suspect]
  3. BEVACIZUMAB OR PLACEBO (BEVACIZUMAB) PWDR + SOLVENT, INFUSION SOLN, 10 [Suspect]
  4. ERLOTINIB(ERLOTINIB) TABLET [Suspect]
     Indication: NON-SMALL CELL LUNG CANCER
     Dosage: 150 MG, QD, ORAL
     Route: 048
     Dates: start: 20060615, end: 20070131

REACTIONS (10)
  - GENERAL PHYSICAL HEALTH DETERIORATION [None]
  - HYPERCAPNIA [None]
  - INFARCTION [None]
  - MEDIASTINITIS [None]
  - OESOPHAGITIS [None]
  - PAIN [None]
  - RESPIRATORY ARREST [None]
  - RESPIRATORY FAILURE [None]
  - TRACHEAL INJURY [None]
  - TRACHEITIS [None]
